FAERS Safety Report 8581213-4 (Version None)
Quarter: 2012Q3

REPORT INFORMATION
  Report Type: 
  Country: None (occurrence: None)
  Receive Date: 20120809
  Receipt Date: 20120727
  Transmission Date: 20120928
  Serious: Yes (Hospitalization)
  Sender: FDA-Public Use
  Company Number: FR-CELGENEUS-056-50794-12061743

PATIENT
  Sex: Female
  Weight: 5 kg

DRUGS (7)
  1. REVLIMID [Suspect]
     Dosage: 10 MILLIGRAM
     Route: 048
     Dates: start: 20120521, end: 20120603
  2. DELURSAN [Concomitant]
     Dosage: 50 MILLIGRAM
     Route: 048
     Dates: start: 20090101
  3. VIDAZA [Suspect]
     Dosage: 119 MILLIGRAM
     Route: 058
     Dates: start: 20120521, end: 20120527
  4. LEVOTHYROXINE SODIUM [Concomitant]
     Indication: AUTOIMMUNE THYROIDITIS
     Dosage: 100 MILLIGRAM
     Route: 048
     Dates: start: 20090101
  5. CYTARABINE [Concomitant]
     Route: 041
     Dates: start: 20120615, end: 20120619
  6. NOVANTRONE [Concomitant]
     Route: 041
     Dates: start: 20120616, end: 20120619
  7. ARANESP [Concomitant]
     Dosage: 500
     Route: 058
     Dates: start: 20120128, end: 20120521

REACTIONS (2)
  - NEUROPATHY PERIPHERAL [None]
  - SUBDURAL HAEMATOMA [None]
